FAERS Safety Report 10750213 (Version 2)
Quarter: 2015Q1

REPORT INFORMATION
  Report Type: Spontaneous
  Country: US (occurrence: US)
  Receive Date: 20150129
  Receipt Date: 20150317
  Transmission Date: 20150721
  Serious: No
  Sender: FDA-Public Use
  Company Number: US-ASTRAZENECA-2015SE06414

PATIENT
  Sex: Female
  Weight: 54.4 kg

DRUGS (8)
  1. SYMBICORT [Suspect]
     Active Substance: BUDESONIDE\FORMOTEROL FUMARATE DIHYDRATE
     Indication: ASTHMA
     Dosage: 160MCG/4.5MCG, 1 PUFFS, TWO TIMES A DAY, SOMETIMES
     Route: 055
     Dates: start: 201501
  2. ALBUTEROL. [Concomitant]
     Active Substance: ALBUTEROL
     Indication: DYSPNOEA
     Dosage: AS REQUIRED
     Dates: start: 1985
  3. VITAMIN D3 [Concomitant]
     Active Substance: CHOLECALCIFEROL
     Dates: start: 2013
  4. SYMBICORT [Suspect]
     Active Substance: BUDESONIDE\FORMOTEROL FUMARATE DIHYDRATE
     Indication: ASTHMA
     Dosage: 160MCG/4.5MCG, 2 PUFFS, TWO TIMES A DAY
     Route: 055
     Dates: start: 201501
  5. BABY ASPIRIN [Concomitant]
     Active Substance: ASPIRIN
     Dates: start: 2014
  6. CHLOROTHIAZOLE [Concomitant]
     Indication: BLOOD PRESSURE ABNORMAL
  7. METOPROLOL THAT IS GENERIC FOR LOPRESSOR [Concomitant]
     Indication: ATRIAL FIBRILLATION
  8. CITALOPRAM [Concomitant]
     Active Substance: CITALOPRAM HYDROBROMIDE
     Indication: ANXIETY

REACTIONS (3)
  - Intentional product use issue [Not Recovered/Not Resolved]
  - Body height decreased [Not Recovered/Not Resolved]
  - Memory impairment [Unknown]
